FAERS Safety Report 5198705-0 (Version None)
Quarter: 2007Q1

REPORT INFORMATION
  Report Type: 
  Country: None (occurrence: None)
  Receive Date: 20070104
  Receipt Date: 20061222
  Transmission Date: 20070707
  Serious: Yes (Other)
  Sender: FDA-Public Use
  Company Number: DE-ELI_LILLY_AND_COMPANY-DE200612004555

PATIENT
  Sex: Female

DRUGS (1)
  1. STRATTERA [Suspect]
     Indication: DISTURBANCE IN SOCIAL BEHAVIOUR
     Dates: start: 20050101, end: 20060101

REACTIONS (3)
  - IMPULSIVE BEHAVIOUR [None]
  - PERSONALITY CHANGE [None]
  - SUICIDAL BEHAVIOUR [None]
